FAERS Safety Report 15556731 (Version 1)
Quarter: 2018Q4

REPORT INFORMATION
  Report Type: Spontaneous
  Country: SE (occurrence: SE)
  Receive Date: 20181026
  Receipt Date: 20181026
  Transmission Date: 20190205
  Serious: Yes (Life-Threatening, Hospitalization)
  Sender: FDA-Public Use
  Company Number: SE-ANIPHARMA-2018-SE-000031

PATIENT
  Age: 54 Year
  Sex: Female

DRUGS (5)
  1. PLENDIL [Suspect]
     Active Substance: FELODIPINE
     Dosage: 5 MG DAILY
     Route: 048
     Dates: end: 20020411
  2. XANAX [Suspect]
     Active Substance: ALPRAZOLAM
     Dosage: .5 MG UNK
     Route: 065
  3. TEMESTA [LORAZEPAM] [Suspect]
     Active Substance: LORAZEPAM
     Dosage: UNK
     Route: 065
  4. REMERON [Suspect]
     Active Substance: MIRTAZAPINE
     Dosage: 30 MG UNK
     Route: 065
  5. ATACAND [Suspect]
     Active Substance: CANDESARTAN CILEXETIL
     Indication: HYPERTENSION
     Dosage: 8 MG DAILY
     Route: 048

REACTIONS (1)
  - Suicide attempt [Recovered/Resolved]

NARRATIVE: CASE EVENT DATE: 20020409
